FAERS Safety Report 14419133 (Version 1)
Quarter: 2018Q1

REPORT INFORMATION
  Report Type: Spontaneous
  Country: US (occurrence: US)
  Receive Date: 20180120
  Receipt Date: 20180120
  Transmission Date: 20180509
  Serious: Yes (Life-Threatening, Other)
  Sender: FDA-Public Use
  Company Number: None

PATIENT
  Age: 4 Year
  Sex: Female
  Weight: 18.09 kg

DRUGS (1)
  1. OSELTAMIVIR [Suspect]
     Active Substance: OSELTAMIVIR
     Indication: INFLUENZA VIRUS TEST POSITIVE
     Dosage: ?          QUANTITY:7.5 ML;?
     Route: 048

REACTIONS (6)
  - Crying [None]
  - Confusional state [None]
  - Paranoia [None]
  - Epistaxis [None]
  - Product label issue [None]
  - Insomnia [None]

NARRATIVE: CASE EVENT DATE: 20180118
